FAERS Safety Report 19090037 (Version 1)
Quarter: 2021Q2

REPORT INFORMATION
  Report Type: Spontaneous
  Country: US (occurrence: US)
  Receive Date: 20210404
  Receipt Date: 20210404
  Transmission Date: 20210717
  Serious: Yes (Life-Threatening, Hospitalization)
  Sender: FDA-Public Use
  Company Number: US-TEVA-2021-US-1895777

PATIENT
  Age: 36 Year
  Sex: Female

DRUGS (5)
  1. SODIUM?BICARBONATE [Suspect]
     Active Substance: SODIUM BICARBONATE
     Indication: DRUG THERAPY
     Dosage: 22.5 MEQ/HR
     Route: 065
  2. LOPERAMIDE [Suspect]
     Active Substance: LOPERAMIDE
     Indication: OVERDOSE
     Route: 048
  3. N?ACETYLCYSTEINE [Suspect]
     Active Substance: ACETYLCYSTEINE
     Indication: DRUG THERAPY
     Route: 065
  4. ISOPROTERENOL. [Suspect]
     Active Substance: ISOPROTERENOL
     Indication: CARDIOGENIC SHOCK
     Dosage: 0.02 UG/KG/MIN
     Route: 065
  5. EPINEPHRINE. [Suspect]
     Active Substance: EPINEPHRINE
     Indication: CARDIOGENIC SHOCK
     Dosage: 0.07 UG/KG/MIN
     Route: 065

REACTIONS (6)
  - Cardiotoxicity [Recovering/Resolving]
  - Acute kidney injury [Recovered/Resolved]
  - Overdose [Unknown]
  - Drug ineffective [Unknown]
  - Cardiogenic shock [Recovering/Resolving]
  - Ventricular tachycardia [Recovering/Resolving]
